FAERS Safety Report 7131509 (Version 25)
Quarter: 2013Q4

REPORT INFORMATION
  Report Type: Spontaneous
  Country: US (occurrence: US)
  Receive Date: 20090925
  Receipt Date: 20131221
  Transmission Date: 20140711
  Serious: Yes (Death, Other)
  Sender: FDA-Public Use
  Company Number: PHEH2009US11009

PATIENT
  Age: 60 Year
  Sex: Female
  Weight: 90 kg

DRUGS (28)
  1. METRONIDAZOLE [Concomitant]
  2. PREVACID [Concomitant]
  3. IMODIUM A-D [Concomitant]
  4. HEPARIN [Concomitant]
  5. OXYCODONE [Concomitant]
  6. OXYCONTIN [Concomitant]
  7. CLINDAMYCIN [Concomitant]
  8. TETRACYCLINE [Concomitant]
  9. HYDROMORPHONE [Concomitant]
     Dosage: 2 MG, UNK
  10. BABY ASPIRIN [Concomitant]
  11. DEXAMETHASONE [Concomitant]
  12. METOPROLOL [Concomitant]
  13. LABETALOL [Concomitant]
  14. DOCUSATE [Concomitant]
  15. ONDANSETRON [Concomitant]
  16. CHLORHEXIDINE [Concomitant]
  17. COUMADINE [Concomitant]
  18. CHEMOTHERAPEUTICS [Concomitant]
  19. STEROIDS NOS [Concomitant]
  20. AMOXICILLIN [Concomitant]
  21. AVASTIN [Concomitant]
  22. XELODA [Concomitant]
  23. MEGACE [Concomitant]
  24. FASLODEX [Concomitant]
  25. ARIMIDEX [Concomitant]
  26. ZOMETA [Suspect]
     Indication: METASTASES TO BONE
     Dosage: 4 MG, QMO
     Route: 065
     Dates: start: 20020715
  27. ZOMETA [Suspect]
     Indication: BREAST CANCER METASTATIC
  28. FOSAMAX [Suspect]

REACTIONS (147)
  - Death [Fatal]
  - Osteonecrosis of jaw [Unknown]
  - Injury [Unknown]
  - Disability [Unknown]
  - Pain [Unknown]
  - Anxiety [Unknown]
  - Anhedonia [Unknown]
  - Emotional distress [Unknown]
  - Infection [Unknown]
  - Deformity [Unknown]
  - Oral pain [Unknown]
  - Oral disorder [Unknown]
  - Pain in jaw [Unknown]
  - Toothache [Unknown]
  - Periodontitis [Unknown]
  - Osteoradionecrosis [Unknown]
  - Gingivitis [Unknown]
  - Oroantral fistula [Unknown]
  - Tooth deposit [Unknown]
  - Exposed bone in jaw [Unknown]
  - Neoplasm progression [Unknown]
  - Metastases to bone [Unknown]
  - Metastases to central nervous system [Unknown]
  - Bone lesion [Unknown]
  - Spinal fracture [Unknown]
  - Metastases to spine [Unknown]
  - Metastases to liver [Unknown]
  - Otitis externa [Recovered/Resolved]
  - Bronchitis [Unknown]
  - Asthma [Unknown]
  - Cholelithiasis [Unknown]
  - Cholecystitis chronic [Unknown]
  - Diplopia [Unknown]
  - White matter lesion [Unknown]
  - Hepatic steatosis [Unknown]
  - Keratosis obturans [Unknown]
  - Back pain [Unknown]
  - Deep vein thrombosis [Unknown]
  - Ischaemic stroke [Unknown]
  - Pathological fracture [Unknown]
  - Diverticulum [Unknown]
  - Uterine leiomyoma [Unknown]
  - Arthritis [Unknown]
  - Lymphoedema [Unknown]
  - Dystrophic calcification [Unknown]
  - Vascular calcification [Unknown]
  - Gait disturbance [Unknown]
  - Deafness [Unknown]
  - Memory impairment [Unknown]
  - Immunosuppression [Unknown]
  - Post thrombotic syndrome [Unknown]
  - Cerebrovascular accident [Unknown]
  - Transient ischaemic attack [Unknown]
  - Osteoarthritis [Unknown]
  - Pulmonary mass [Unknown]
  - Intervertebral disc degeneration [Unknown]
  - Cardiomegaly [Unknown]
  - Confusional state [Unknown]
  - Hypoxia [Unknown]
  - Overdose [Unknown]
  - Sinusitis [Unknown]
  - Abdominal pain [Unknown]
  - Dyspnoea [Unknown]
  - Chest pain [Unknown]
  - Hypoaesthesia [Unknown]
  - Joint swelling [Unknown]
  - Pollakiuria [Unknown]
  - Contusion [Unknown]
  - Headache [Unknown]
  - Dyspepsia [Unknown]
  - Fatigue [Unknown]
  - Skin ulcer [Unknown]
  - Stomatitis [Unknown]
  - Mucosal inflammation [Unknown]
  - Gastrooesophageal reflux disease [Unknown]
  - Hyperkalaemia [Unknown]
  - Paraesthesia [Unknown]
  - Peripheral embolism [Unknown]
  - Pulmonary embolism [Unknown]
  - Embolism venous [Unknown]
  - Cerumen impaction [Unknown]
  - Exostosis [Unknown]
  - Tympanic membrane perforation [Unknown]
  - Hearing impaired [Unknown]
  - Visual impairment [Unknown]
  - Primary sequestrum [Unknown]
  - Bone marrow oedema [Unknown]
  - Osteonecrosis [Unknown]
  - Wound [Unknown]
  - Muscle oedema [Unknown]
  - Fall [Unknown]
  - Arthralgia [Unknown]
  - Mental status changes [Unknown]
  - Dysphagia [Unknown]
  - Coma [Unknown]
  - Alopecia [Unknown]
  - Fracture displacement [Unknown]
  - Urinary tract infection [Unknown]
  - Spinal column stenosis [Unknown]
  - Femur fracture [Unknown]
  - Avulsion fracture [Unknown]
  - Anaemia [Unknown]
  - Dental caries [Unknown]
  - Intervertebral disc protrusion [Unknown]
  - Tooth loss [Unknown]
  - Rib fracture [Unknown]
  - Ecchymosis [Unknown]
  - Tachycardia [Unknown]
  - Renal failure [Recovered/Resolved]
  - Azotaemia [Unknown]
  - Phlebitis deep [Unknown]
  - Vertebral foraminal stenosis [Unknown]
  - Atelectasis [Unknown]
  - Hypokalaemia [Unknown]
  - Cerebral artery occlusion [Unknown]
  - Dehydration [Unknown]
  - Metastases to pelvis [Unknown]
  - Urinary incontinence [Unknown]
  - Spinal osteoarthritis [Unknown]
  - Kyphosis [Unknown]
  - Spinal compression fracture [Unknown]
  - Rectal haemorrhage [Unknown]
  - Laceration [Unknown]
  - Femoral neck fracture [Unknown]
  - Epistaxis [Unknown]
  - Hyperlipidaemia [Unknown]
  - Oral candidiasis [Unknown]
  - Haemorrhage [Unknown]
  - Spinal deformity [Unknown]
  - Head injury [Unknown]
  - Failure to thrive [Unknown]
  - Musculoskeletal discomfort [Unknown]
  - Cardiac failure [Unknown]
  - Colon cancer [Unknown]
  - Lung neoplasm malignant [Unknown]
  - Bronchial carcinoma [Unknown]
  - Second primary malignancy [Unknown]
  - Back injury [Unknown]
  - Lethargy [Unknown]
  - Cerebral infarction [Unknown]
  - Osteosclerosis [Unknown]
  - Diabetes mellitus [Unknown]
  - Atrial fibrillation [Unknown]
  - Metabolic acidosis [Unknown]
  - Chronic obstructive pulmonary disease [Unknown]
  - Sleep apnoea syndrome [Unknown]
  - Pain in extremity [Unknown]
